FAERS Safety Report 7990567-9 (Version None)
Quarter: 2011Q4

REPORT INFORMATION
  Report Type: 
  Country: None (occurrence: None)
  Receive Date: 20111219
  Receipt Date: 20101122
  Transmission Date: 20120403
  Serious: No
  Sender: FDA-Public Use
  Company Number: US-ASTRAZENECA-2010SE55696

PATIENT
  Age: 59 Year
  Sex: Male
  Weight: 95.3 kg

DRUGS (12)
  1. ISOSORBIDE DINITRATE [Concomitant]
     Route: 048
  2. DIOVAN [Concomitant]
     Dosage: 160/12.5 MG DAILY
     Route: 048
  3. CLARITIN [Concomitant]
     Route: 048
  4. CRESTOR [Suspect]
     Route: 048
     Dates: start: 20100101
  5. CRESTOR [Suspect]
     Route: 048
     Dates: start: 20100101
  6. ASPIRIN [Concomitant]
     Route: 048
  7. ERGOMYER [Concomitant]
     Indication: CLUSTER HEADACHE
     Dosage: PRN
  8. PEPCID [Concomitant]
     Route: 048
  9. GABAPENTIN [Suspect]
     Route: 048
  10. CRESTOR [Suspect]
     Route: 048
     Dates: start: 20100901
  11. METOPROLOL TARTRATE [Concomitant]
     Route: 048
  12. PLAVIX [Concomitant]
     Route: 048

REACTIONS (6)
  - WEIGHT INCREASED [None]
  - PAIN IN EXTREMITY [None]
  - APPETITE DISORDER [None]
  - NERVE INJURY [None]
  - WRONG TECHNIQUE IN DRUG USAGE PROCESS [None]
  - MUSCULOSKELETAL PAIN [None]
